FAERS Safety Report 4304130-4 (Version None)
Quarter: 2004Q1

REPORT INFORMATION
  Report Type: 
  Country: None (occurrence: None)
  Receive Date: 20040224
  Receipt Date: 20040210
  Transmission Date: 20041129
  Serious: Yes (Hospitalization)
  Sender: FDA-Public Use
  Company Number: 04P-087-0250163-00

PATIENT
  Age: 57 Year
  Sex: Female
  Weight: 49.4 kg

DRUGS (5)
  1. OMNICEF [Suspect]
     Indication: UPPER RESPIRATORY TRACT INFLAMMATION
     Dosage: PER ORAL
     Route: 048
     Dates: start: 20011105, end: 20011107
  2. MINOCYCLINE HCL [Suspect]
     Indication: UPPER RESPIRATORY TRACT INFLAMMATION
     Dosage: PER ORAL
     Route: 048
     Dates: start: 20011030, end: 20011102
  3. AMBROXOL [Concomitant]
  4. DICLOFENAC [Concomitant]
  5. TRANEXAMIC ACID [Concomitant]

REACTIONS (11)
  - APHTHOUS STOMATITIS [None]
  - BLOOD KETONE BODY INCREASED [None]
  - DIABETES MELLITUS INADEQUATE CONTROL [None]
  - DIABETES MELLITUS INSULIN-DEPENDENT [None]
  - DRUG ERUPTION [None]
  - ERYTHEMA [None]
  - HEPATIC FUNCTION ABNORMAL [None]
  - HYPERSENSITIVITY [None]
  - LYMPHADENOPATHY [None]
  - PANCREATIC ENZYMES INCREASED [None]
  - RENAL TUBULAR DISORDER [None]
